FAERS Safety Report 5639873-3 (Version None)
Quarter: 2008Q1

REPORT INFORMATION
  Report Type: 
  Country: None (occurrence: None)
  Receive Date: 20080227
  Receipt Date: 20080218
  Transmission Date: 20080703
  Serious: Yes (Hospitalization)
  Sender: FDA-Public Use
  Company Number: FR-JNJFOC-20080203797

PATIENT
  Sex: Female

DRUGS (2)
  1. DURAGESIC-100 [Suspect]
     Indication: PAIN
     Route: 062
  2. KABIVEN [Concomitant]
     Indication: PARENTERAL NUTRITION
     Route: 042

REACTIONS (2)
  - ABDOMINAL PAIN [None]
  - PSYCHOMOTOR HYPERACTIVITY [None]
